FAERS Safety Report 14036341 (Version 4)
Quarter: 2018Q1

REPORT INFORMATION
  Report Type: Report from Study
  Country: US (occurrence: US)
  Receive Date: 20171003
  Receipt Date: 20180228
  Transmission Date: 20180508
  Serious: Yes (Disabling, Other)
  Sender: FDA-Public Use
  Company Number: US-ROCHE-1995870

PATIENT
  Age: 70 Year
  Sex: Female
  Weight: 64.92 kg

DRUGS (10)
  1. LEVOTHYROXINE. [Concomitant]
     Active Substance: LEVOTHYROXINE
  2. AMPYRA [Concomitant]
     Active Substance: DALFAMPRIDINE
  3. CARBAMAZEPINE. [Concomitant]
     Active Substance: CARBAMAZEPINE
  4. BACLOFEN. [Concomitant]
     Active Substance: BACLOFEN
     Indication: MUSCLE SPASTICITY
     Dosage: Q10,
     Route: 048
  5. GABAPENTIN. [Concomitant]
     Active Substance: GABAPENTIN
  6. OCREVUS [Suspect]
     Active Substance: OCRELIZUMAB
     Dosage: 600 MG (300 MG X 2)
     Route: 042
     Dates: start: 20170807, end: 201708
  7. TIZANIDINE. [Concomitant]
     Active Substance: TIZANIDINE
  8. ESTRADIOL. [Concomitant]
     Active Substance: ESTRADIOL
  9. OCREVUS [Suspect]
     Active Substance: OCRELIZUMAB
     Indication: MULTIPLE SCLEROSIS
     Dosage: ON 09/MAY/2017, THE PATIENT WAS PRESCRIBED WITH IV OCRELIZUMAB 300 MG ONCE IN TWO WEEKS FOLLOWED BY
     Route: 042
     Dates: start: 20170724
  10. BOTOX [Concomitant]
     Active Substance: ONABOTULINUMTOXINA
     Indication: MUSCLE SPASTICITY
     Route: 065
     Dates: start: 20170810, end: 20170810

REACTIONS (17)
  - Lip swelling [Recovering/Resolving]
  - B-lymphocyte count decreased [Unknown]
  - Pruritus [Recovering/Resolving]
  - Scab [Recovering/Resolving]
  - Bacterial infection [Unknown]
  - Fatigue [Recovering/Resolving]
  - Swollen tongue [Recovering/Resolving]
  - Pharyngeal oedema [Recovering/Resolving]
  - Urinary tract infection [Recovering/Resolving]
  - Oesophagitis [Recovering/Resolving]
  - Rash macular [Recovering/Resolving]
  - Tongue erythema [Recovering/Resolving]
  - Pharyngeal ulceration [Recovering/Resolving]
  - Drug hypersensitivity [Not Recovered/Not Resolved]
  - Stomatitis [Recovering/Resolving]
  - Burn oesophageal [Recovering/Resolving]
  - Dermatitis [Recovering/Resolving]

NARRATIVE: CASE EVENT DATE: 201708
